FAERS Safety Report 10100341 (Version 1)
Quarter: 2014Q2

REPORT INFORMATION
  Report Type: Spontaneous
  Country: JP (occurrence: JP)
  Receive Date: 20140423
  Receipt Date: 20140423
  Transmission Date: 20141212
  Serious: No
  Sender: FDA-Public Use
  Company Number: JP-ASTRAZENECA-2014SE27537

PATIENT
  Age: 55 Year
  Sex: Male
  Weight: 64 kg

DRUGS (2)
  1. DIPRIVAN [Suspect]
     Indication: SEDATION
     Dosage: TOTAL DOSE UNKNOWN
     Route: 042
     Dates: start: 20140407, end: 20140408
  2. DIPRIVAN [Suspect]
     Indication: SEDATION
     Route: 042
     Dates: start: 20140407, end: 20140410

REACTIONS (2)
  - Device infusion issue [Unknown]
  - Premature recovery from anaesthesia [Recovered/Resolved]
